FAERS Safety Report 11511477 (Version 1)
Quarter: 2015Q3

REPORT INFORMATION
  Report Type: Spontaneous
  Country: US (occurrence: US)
  Receive Date: 20150915
  Receipt Date: 20150915
  Transmission Date: 20151125
  Serious: No
  Sender: FDA-Public Use
  Company Number: CHPA2015US010790

PATIENT
  Age: 58 Year
  Sex: Female

DRUGS (2)
  1. VOLTAREN [Suspect]
     Active Substance: DICLOFENAC SODIUM
     Indication: MULTIPLE SCLEROSIS
     Dosage: 4 G, QID
     Route: 061
     Dates: end: 20150914
  2. VOLTAREN [Suspect]
     Active Substance: DICLOFENAC SODIUM
     Indication: FIBROMYALGIA

REACTIONS (7)
  - Faeces discoloured [Not Recovered/Not Resolved]
  - Abdominal pain upper [Recovered/Resolved]
  - Incorrect dose administered [Unknown]
  - Diarrhoea [Recovered/Resolved]
  - Abdominal distension [Not Recovered/Not Resolved]
  - Drug ineffective for unapproved indication [Unknown]
  - Vein disorder [Recovering/Resolving]

NARRATIVE: CASE EVENT DATE: 20150912
